FAERS Safety Report 6462917-6 (Version None)
Quarter: 2009Q4

REPORT INFORMATION
  Report Type: 
  Country: None (occurrence: None)
  Receive Date: 20091130
  Receipt Date: 20091116
  Transmission Date: 20100525
  Serious: Yes (Other)
  Sender: FDA-Public Use
  Company Number: IR-GENENTECH-294798

PATIENT

DRUGS (2)
  1. BEVACIZUMAB [Suspect]
     Indication: DIABETIC RETINOPATHY
     Route: 031
  2. POVIDONE IODINE [Suspect]
     Indication: DRUG USE FOR UNKNOWN INDICATION
     Route: 048

REACTIONS (3)
  - OPERATIVE HAEMORRHAGE [None]
  - RETINAL TEAR [None]
  - VITREOUS HAEMORRHAGE [None]
